FAERS Safety Report 24214300 (Version 1)
Quarter: 2024Q3

REPORT INFORMATION
  Report Type: Spontaneous
  Country: US (occurrence: None)
  Receive Date: 20240814
  Receipt Date: 20240814
  Transmission Date: 20241016
  Serious: Yes (Hospitalization)
  Sender: Public
  Company Number: None

PATIENT
  Age: 84 Year
  Sex: Female

DRUGS (16)
  1. PROLIA [Suspect]
     Active Substance: DENOSUMAB
     Indication: Senile osteoporosis
     Route: 058
     Dates: start: 20160419
  2. ATORVASTATIN [Concomitant]
     Active Substance: ATORVASTATIN
  3. CICLOPIROX [Concomitant]
     Active Substance: CICLOPIROX
  4. CLONAZEPAM [Concomitant]
     Active Substance: CLONAZEPAM
  5. VITAMIN D3 [Concomitant]
     Active Substance: CHOLECALCIFEROL
  6. Ammonium [Concomitant]
  7. DONEPEZIL [Concomitant]
     Active Substance: DONEPEZIL\DONEPEZIL HYDROCHLORIDE
  8. LUTEIN [Concomitant]
     Active Substance: LUTEIN
  9. MIRTAZAPINE [Concomitant]
     Active Substance: MIRTAZAPINE
  10. BUSPIRONE [Concomitant]
     Active Substance: BUSPIRONE HYDROCHLORIDE
  11. IPRATROPIUM [Concomitant]
     Active Substance: IPRATROPIUM
  12. OMEPRAZOLE [Concomitant]
     Active Substance: OMEPRAZOLE
  13. FLUTICASONE [Concomitant]
     Active Substance: FLUTICASONE
  14. FAMOTIDINE [Concomitant]
     Active Substance: FAMOTIDINE
  15. CLOTRIMAZOLE [Concomitant]
     Active Substance: CLOTRIMAZOLE
  16. LOSARTAN [Concomitant]
     Active Substance: LOSARTAN\LOSARTAN POTASSIUM

REACTIONS (2)
  - Fall [None]
  - Rib fracture [None]

NARRATIVE: CASE EVENT DATE: 20240814
